FAERS Safety Report 19401730 (Version 1)
Quarter: 2021Q2

REPORT INFORMATION
  Report Type: Spontaneous
  Country: CN (occurrence: CN)
  Receive Date: 20210611
  Receipt Date: 20210611
  Transmission Date: 20210717
  Serious: Yes (Other)
  Sender: FDA-Public Use
  Company Number: CN-ROCHE-2843071

PATIENT
  Age: 66 Year
  Sex: Male

DRUGS (15)
  1. CARBOPLATIN. [Concomitant]
     Active Substance: CARBOPLATIN
     Indication: SMALL CELL LUNG CANCER
     Dosage: ON 05/FEB/2021, 27/FEB/2021,ATEZOLIZUMAB+PACLITAXEL (ALBUMIN BOUND)+CARBOPLATIN
  2. TECENTRIQ [Suspect]
     Active Substance: ATEZOLIZUMAB
     Dosage: ON 05 FEB 2021,27 FEB 2021, ATEZOLIZUMAB+PACLITAXEL (ALBUMIN BOUND)+CARBOPLATIN FOR 2 CYCLES
     Route: 041
  3. CISPLATIN. [Concomitant]
     Active Substance: CISPLATIN
     Dosage: ON 06/FEB/2020, 03/MAR/2020, EP REGIMEN
  4. TECENTRIQ [Suspect]
     Active Substance: ATEZOLIZUMAB
     Dosage: ON 27 MAR 2021,16 APR 2021,08 MAY 2021,ATEZOLIZUMAB COMBINED WITH?PACLITAXEL(ALBUMIN)
     Route: 041
  5. CISPLATIN. [Concomitant]
     Active Substance: CISPLATIN
     Indication: SMALL CELL LUNG CANCER
     Dosage: EP REGIMEN FOR 2 CYCLES. 30/NOV/2019, 27/DEC/2019.
     Dates: start: 20191130
  6. ETOPOSIDE. [Concomitant]
     Active Substance: ETOPOSIDE
     Dosage: EP REGIMEN
     Dates: start: 20200415
  7. ETOPOSIDE. [Concomitant]
     Active Substance: ETOPOSIDE
     Dosage: ATEZOLIZUMAB+ EP REGIMEN
     Dates: start: 20200508
  8. PACLITAXEL. [Concomitant]
     Active Substance: PACLITAXEL
     Dosage: ON 27/MAR/2021,16/APR/2021,08/MAY/2021, ATEZOLIZUMAB COMBINED WITH PACLITAXEL (ALBUMIN).
  9. TECENTRIQ [Suspect]
     Active Substance: ATEZOLIZUMAB
     Indication: SMALL CELL LUNG CANCER
     Dosage: ATEZOLIZUMAB+ EP REGIMEN?ON 30 MAY 2020,22 JUN 2020,14 JUL 2020,03 AUG 2020,24 AUG 2020
     Route: 041
     Dates: start: 20200508
  10. CISPLATIN. [Concomitant]
     Active Substance: CISPLATIN
     Dosage: EP REGIMEN
     Dates: start: 20200416
  11. CISPLATIN. [Concomitant]
     Active Substance: CISPLATIN
     Dosage: ATEZOLIZUMAB+ EP REGIMEN
     Dates: start: 20200508
  12. PACLITAXEL. [Concomitant]
     Active Substance: PACLITAXEL
     Indication: SMALL CELL LUNG CANCER
     Dosage: ON 05/FEB/2021, 27/FEB/2021, DAY 1, DAY 8 FOR TWO CYCLES
  13. ETOPOSIDE. [Concomitant]
     Active Substance: ETOPOSIDE
     Indication: SMALL CELL LUNG CANCER
     Dosage: EP REGIMEN FOR 2 CYCLES ON 30/NOV/2019, 27/DEC/2019
  14. ETOPOSIDE. [Concomitant]
     Active Substance: ETOPOSIDE
     Dosage: EP REGIMEN  ON 06/FEB/2020, 03/MAR/2020.
  15. TECENTRIQ [Suspect]
     Active Substance: ATEZOLIZUMAB
     Dosage: ON 30 MAY 2020,22 JUN 2020,14 JUL 2020,03 AUG 2020,24 AUG 2020
     Route: 041

REACTIONS (5)
  - Radiation pneumonitis [Unknown]
  - Decreased appetite [Unknown]
  - Gastrointestinal disorder [Unknown]
  - Asthenia [Unknown]
  - Platelet count decreased [Unknown]
